FAERS Safety Report 14460411 (Version 1)
Quarter: 2018Q1

REPORT INFORMATION
  Report Type: Spontaneous
  Country: US (occurrence: US)
  Receive Date: 20180130
  Receipt Date: 20180130
  Transmission Date: 20180509
  Serious: Yes (Disabling)
  Sender: FDA-Public Use
  Company Number: None

PATIENT
  Age: 69 Year
  Sex: Female
  Weight: 105.75 kg

DRUGS (9)
  1. CARVEDILOL. [Concomitant]
     Active Substance: CARVEDILOL
  2. NEPHEDIPINE [Concomitant]
  3. LOSARTAN/HCTZ [Concomitant]
     Active Substance: HYDROCHLOROTHIAZIDE\LOSARTAN
  4. GUMMIES WOMEN^S VITAMIN [Concomitant]
  5. METFORMIN [Concomitant]
     Active Substance: METFORMIN HYDROCHLORIDE
  6. PERSANTINE [Suspect]
     Active Substance: DIPYRIDAMOLE
     Indication: CARDIAC PHARMACOLOGIC STRESS TEST
     Dates: start: 20170203
  7. PAIN KILLER ANTICONVULSANT NON NARCOTIC PILL [Concomitant]
  8. MYOVIEW [Suspect]
     Active Substance: TECHNETIUM TC-99M TETROFOSMIN
     Indication: CARDIAC PHARMACOLOGIC STRESS TEST
  9. GUMMIES FIBER PILL [Concomitant]

REACTIONS (4)
  - Chest discomfort [None]
  - Myocardial infarction [None]
  - Blood pressure increased [None]
  - Headache [None]

NARRATIVE: CASE EVENT DATE: 20170203
